FAERS Safety Report 7539509-0 (Version None)
Quarter: 2011Q2

REPORT INFORMATION
  Report Type: 
  Country: None (occurrence: None)
  Receive Date: 20110610
  Receipt Date: 20110608
  Transmission Date: 20111010
  Serious: Yes (Death, Life-Threatening)
  Sender: FDA-Public Use
  Company Number: JP-PFIZER INC-2011125405

PATIENT
  Age: 30 Year
  Sex: Male
  Weight: 75 kg

DRUGS (5)
  1. TEMSIROLIMUS [Suspect]
     Indication: RENAL CELL CARCINOMA
     Dosage: 25 MG, WEEKLY
     Dates: start: 20110126, end: 20110406
  2. DECADRON [Concomitant]
     Indication: RENAL CELL CARCINOMA
     Dosage: 0.5 MG, 1X/DAY
     Route: 048
     Dates: start: 20110316
  3. TEMSIROLIMUS [Suspect]
     Dosage: 25 MG, WEEKLY
     Dates: start: 20110425, end: 20110425
  4. CHLORPHENIRAMINE MALEATE [Concomitant]
     Indication: PROPHYLAXIS
     Dosage: 10 MG, WEEKLY
     Route: 042
     Dates: start: 20110126, end: 20110406
  5. CHLORPHENIRAMINE MALEATE [Concomitant]
     Dosage: 10 MG, WEEKLY
     Route: 042
     Dates: start: 20110425, end: 20110425

REACTIONS (1)
  - PNEUMOCYSTIS JIROVECI PNEUMONIA [None]
